FAERS Safety Report 7216481-4 (Version None)
Quarter: 2011Q1

REPORT INFORMATION
  Report Type: 
  Country: None (occurrence: None)
  Receive Date: 20110107
  Receipt Date: 20101228
  Transmission Date: 20110831
  Serious: Yes (Hospitalization)
  Sender: FDA-Public Use
  Company Number: PHHY2010JP88779

PATIENT
  Sex: Male

DRUGS (14)
  1. LENDORMIN [Concomitant]
     Dosage: 0.25 MG, UNK
     Route: 048
     Dates: start: 20100804
  2. AFINITOR [Suspect]
     Indication: METASTATIC RENAL CELL CARCINOMA
     Dosage: 5 MG DAILY
     Route: 048
     Dates: start: 20100804, end: 20100819
  3. HYPEN [Concomitant]
     Indication: METASTATIC RENAL CELL CARCINOMA
     Dosage: 800 MG, UNK
     Route: 048
     Dates: start: 20100929, end: 20101019
  4. CONIEL [Concomitant]
     Dosage: 4 MG, UNK
     Route: 048
     Dates: start: 20100807
  5. CRESTOR [Concomitant]
     Dosage: 2.5 MG, UNK
     Route: 048
     Dates: start: 20100807
  6. MAGMITT KENEI [Concomitant]
     Dosage: 330 MG, UNK
     Route: 048
     Dates: start: 20100929
  7. OLMETEC [Concomitant]
     Dosage: 5 MG, UNK
     Route: 048
     Dates: start: 20100804
  8. LAXOBERON [Concomitant]
     Route: 048
  9. AFINITOR [Suspect]
     Dosage: 5 MG DAILY
     Route: 048
     Dates: start: 20100907, end: 20100914
  10. FRANDOL [Concomitant]
     Dosage: 40 MG, UNK
     Dates: start: 20100804
  11. GASLON [Concomitant]
     Dosage: 4 MG, UNK
     Route: 048
     Dates: start: 20100929
  12. OXYCONTIN [Concomitant]
     Indication: METASTATIC RENAL CELL CARCINOMA
     Dates: start: 20100929, end: 20101004
  13. DUROTEP [Concomitant]
     Indication: METASTATIC RENAL CELL CARCINOMA
     Dates: start: 20101005, end: 20101014
  14. MAINTATE [Concomitant]
     Dosage: 5 MG, UNK
     Route: 048

REACTIONS (6)
  - INTERSTITIAL LUNG DISEASE [None]
  - BACTERIAL INFECTION [None]
  - ABDOMINAL PAIN LOWER [None]
  - HEPATIC FUNCTION ABNORMAL [None]
  - DECREASED APPETITE [None]
  - ABDOMINAL ABSCESS [None]
